FAERS Safety Report 4423133-2 (Version None)
Quarter: 2004Q3

REPORT INFORMATION
  Report Type: 
  Country: None (occurrence: None)
  Receive Date: 20040805
  Receipt Date: 20040723
  Transmission Date: 20050211
  Serious: Yes (Death)
  Sender: FDA-Public Use
  Company Number: US-JNJFOC-20040706480

PATIENT
  Age: 68 Year
  Sex: Female

DRUGS (9)
  1. INFLIXIMAB (INFLIXIMAB, RECOMBINANT) LYOPHILIZED POWDER [Suspect]
     Indication: RHEUMATOID ARTHRITIS
     Dosage: 1 DOSE (S), INTRAVENOUS
     Route: 042
     Dates: start: 20010610
  2. LOTREL (LOTREL) [Concomitant]
  3. CARDIZEM [Concomitant]
  4. ALBUTEROL (SALBUTAMOL) INHALATION [Concomitant]
  5. ADVAIR (SERETIDE MITE)INHALATION [Concomitant]
  6. FOLIC ACID [Concomitant]
  7. FOSAMX (ALENDRONATE SODIUM) [Concomitant]
  8. PREDNISONE [Concomitant]
  9. METHOTREXATE [Concomitant]

REACTIONS (1)
  - DEATH [None]
